FAERS Safety Report 13948791 (Version 3)
Quarter: 2017Q3

REPORT INFORMATION
  Report Type: Spontaneous
  Country: US (occurrence: US)
  Receive Date: 20170908
  Receipt Date: 20170914
  Transmission Date: 20171128
  Serious: Yes (Other)
  Sender: FDA-Public Use
  Company Number: US-TEVA-802992USA

PATIENT
  Age: 54 Year
  Sex: Female
  Weight: 63.56 kg

DRUGS (5)
  1. QNASL [Suspect]
     Active Substance: BECLOMETHASONE DIPROPIONATE
     Indication: SINUSITIS
     Dosage: 8 DOSAGE FORMS DAILY;
     Route: 045
     Dates: start: 2012
  2. ADVAIR HFA [Concomitant]
     Active Substance: FLUTICASONE PROPIONATE\SALMETEROL XINAFOATE
  3. QNASL [Suspect]
     Active Substance: BECLOMETHASONE DIPROPIONATE
     Indication: RESPIRATORY TRACT CONGESTION
     Dosage: 4 DOSAGE FORMS DAILY;
     Route: 045
  4. QNASL [Suspect]
     Active Substance: BECLOMETHASONE DIPROPIONATE
     Indication: ANOSMIA
  5. QNASL [Suspect]
     Active Substance: BECLOMETHASONE DIPROPIONATE
     Indication: AGEUSIA

REACTIONS (7)
  - Nasal operation [Recovered/Resolved]
  - Ageusia [Unknown]
  - Sinusitis [Unknown]
  - Respiratory tract congestion [Not Recovered/Not Resolved]
  - Drug ineffective [Unknown]
  - Product physical issue [Unknown]
  - Anosmia [Unknown]

NARRATIVE: CASE EVENT DATE: 201701
